FAERS Safety Report 5127612-4 (Version None)
Quarter: 2006Q4

REPORT INFORMATION
  Report Type: 
  Country: None (occurrence: None)
  Receive Date: 20061011
  Receipt Date: 20060922
  Transmission Date: 20070319
  Serious: Yes (Hospitalization)
  Sender: FDA-Public Use
  Company Number: 2006RR-03865

PATIENT
  Age: 66 Year
  Sex: Male
  Weight: 105 kg

DRUGS (8)
  1. ASPIRIN [Suspect]
     Indication: MYOCARDIAL ISCHAEMIA
     Dosage: 75 MG, ORAL
     Route: 048
     Dates: start: 20050501, end: 20060328
  2. CLOPIDOGREL    (CLOPIDOGRE) [Suspect]
     Indication: MYOCARDIAL ISCHAEMIA
     Dosage: 75 MG, ORAL
     Route: 048
     Dates: start: 20050901, end: 20060328
  3. EZETIMIBE [Concomitant]
  4. LANSOPRAZOLE [Concomitant]
  5. NOVOMIX [Concomitant]
  6. ACETAMINOPHEN [Concomitant]
  7. RAMIPRIL [Concomitant]
  8. SIMVASTATIN [Concomitant]

REACTIONS (2)
  - FALL [None]
  - SUBDURAL HAEMATOMA [None]
